FAERS Safety Report 18321881 (Version 1)
Quarter: 2020Q3

REPORT INFORMATION
  Report Type: Spontaneous
  Country: SE (occurrence: SE)
  Receive Date: 20200929
  Receipt Date: 20200929
  Transmission Date: 20201103
  Serious: Yes (Life-Threatening, Hospitalization, Other)
  Sender: FDA-Public Use
  Company Number: SE-LUPIN PHARMACEUTICALS INC.-2020-06576

PATIENT
  Age: 68 Year
  Sex: Male

DRUGS (6)
  1. VASOPRESSIN. [Concomitant]
     Active Substance: VASOPRESSIN
     Indication: MEAN ARTERIAL PRESSURE DECREASED
     Dosage: UNK (0.03 U/MIN)
     Route: 065
  2. AMLODIPINE [Suspect]
     Active Substance: AMLODIPINE BESYLATE
     Indication: PRODUCT USED FOR UNKNOWN INDICATION
     Dosage: UNK
     Route: 048
  3. METHYLENE BLUE. [Concomitant]
     Active Substance: METHYLENE BLUE
     Indication: MEAN ARTERIAL PRESSURE DECREASED
     Dosage: 1 MILLIGRAM/KILOGRAM (AS SINGLE BOLUS)
     Route: 065
  4. NORADRENALINE (NORPINEPHRINE) [Concomitant]
     Active Substance: NOREPINEPHRINE
     Indication: MEAN ARTERIAL PRESSURE DECREASED
     Dosage: UNK (0.1 MICROG/KG/MIN)
     Route: 065
  5. ALBUMIN [Concomitant]
     Active Substance: ALBUMIN HUMAN
     Indication: MEAN ARTERIAL PRESSURE DECREASED
     Dosage: 250 MILLILITER
     Route: 065
  6. NORADRENALINE (NORPINEPHRINE) [Concomitant]
     Active Substance: NOREPINEPHRINE
     Dosage: UNK (0.5 MICROG/KG/MIN)
     Route: 065

REACTIONS (7)
  - Hyperdynamic left ventricle [Recovered/Resolved]
  - Mean arterial pressure decreased [Recovered/Resolved]
  - Suicide attempt [Recovered/Resolved]
  - Intentional overdose [Unknown]
  - Non-cardiogenic pulmonary oedema [Recovered/Resolved]
  - Toxicity to various agents [Recovered/Resolved]
  - Urine output decreased [Recovered/Resolved]
